FAERS Safety Report 4701548-2 (Version None)
Quarter: 2005Q2

REPORT INFORMATION
  Report Type: 
  Country: None (occurrence: None)
  Receive Date: 20050627
  Receipt Date: 20050613
  Transmission Date: 20051028
  Serious: Yes (Death)
  Sender: FDA-Public Use
  Company Number: 2005-01103

PATIENT
  Age: 73 Year
  Sex: Male

DRUGS (8)
  1. VELCADE [Suspect]
     Indication: MULTIPLE MYELOMA
     Dosage: 2.10 MG QD INTRAVENOUS
     Route: 042
     Dates: start: 20050503, end: 20050510
  2. ALLOPURINOL [Concomitant]
  3. ITRACONAZOLE [Concomitant]
  4. COTRIMOXAZOL ^ALIUD^ (SULFAMETHOXAZOLE, TRIMETHOPRIM) [Concomitant]
  5. CLICLAZIDE (GLICLAZIDE) [Concomitant]
  6. METHYLPREDNISOLONE [Concomitant]
  7. PANTOPRAZOLE SODIUM [Concomitant]
  8. AMPICILLIN [Concomitant]

REACTIONS (12)
  - ANAEMIA [None]
  - ANURIA [None]
  - BRONCHOPNEUMONIA [None]
  - CARDIAC DISORDER [None]
  - CONDITION AGGRAVATED [None]
  - GASTROINTESTINAL HAEMORRHAGE [None]
  - HYPERKALAEMIA [None]
  - HYPOGLYCAEMIA [None]
  - HYPOVOLAEMIC SHOCK [None]
  - PANCREATITIS ACUTE [None]
  - RENAL FAILURE [None]
  - THROMBOCYTOPENIA [None]
